FAERS Safety Report 17565027 (Version 1)
Quarter: 2020Q1

REPORT INFORMATION
  Report Type: Spontaneous
  Country: US (occurrence: US)
  Receive Date: 20200320
  Receipt Date: 20200320
  Transmission Date: 20200409
  Serious: Yes (Other)
  Sender: FDA-Public Use
  Company Number: US-ROCHE-2569923

PATIENT
  Age: 22 Year
  Sex: Female

DRUGS (16)
  1. ISOSORBIDE MONONITRATE. [Suspect]
     Active Substance: ISOSORBIDE MONONITRATE
     Indication: VENTRICULAR FIBRILLATION
     Route: 065
  2. NIFEDIPINE. [Suspect]
     Active Substance: NIFEDIPINE
     Indication: VENTRICULAR FIBRILLATION
     Route: 065
  3. ROPIVACAINE. [Suspect]
     Active Substance: ROPIVACAINE HYDROCHLORIDE
     Route: 065
  4. DIAZEPAM. [Suspect]
     Active Substance: DIAZEPAM
     Indication: VENTRICULAR FIBRILLATION
     Route: 065
  5. NITROGLYCERIN. [Suspect]
     Active Substance: NITROGLYCERIN
     Route: 065
  6. NITROGLYCERIN. [Suspect]
     Active Substance: NITROGLYCERIN
     Dosage: 150 MCG/MIN
     Route: 042
  7. MIDAZOLAM. [Suspect]
     Active Substance: MIDAZOLAM
     Indication: ANXIETY
     Route: 042
  8. NITROGLYCERIN. [Suspect]
     Active Substance: NITROGLYCERIN
     Indication: VENTRICULAR FIBRILLATION
     Route: 062
  9. NITROGLYCERIN. [Suspect]
     Active Substance: NITROGLYCERIN
     Route: 042
  10. ROPIVACAINE. [Suspect]
     Active Substance: ROPIVACAINE HYDROCHLORIDE
     Indication: EPIDURAL ANAESTHESIA
     Dosage: AT 5 ML/HOUR
     Route: 042
  11. METOPROLOL. [Suspect]
     Active Substance: METOPROLOL
     Indication: VENTRICULAR FIBRILLATION
     Route: 065
  12. VERAPAMIL [Suspect]
     Active Substance: VERAPAMIL HYDROCHLORIDE
     Indication: VENTRICULAR FIBRILLATION
     Route: 065
  13. EPINEPHRINE. [Suspect]
     Active Substance: EPINEPHRINE
     Indication: PRODUCT USED FOR UNKNOWN INDICATION
     Route: 065
  14. MAGNESIUM SALT [Suspect]
     Active Substance: MAGNESIUM
     Indication: VENTRICULAR FIBRILLATION
     Route: 065
  15. FENTANYL. [Suspect]
     Active Substance: FENTANYL
     Indication: ANXIETY
     Route: 042
  16. LIDOCAINE. [Suspect]
     Active Substance: LIDOCAINE
     Indication: PRODUCT USED FOR UNKNOWN INDICATION
     Route: 065

REACTIONS (3)
  - Anxiety [Unknown]
  - Horner^s syndrome [Unknown]
  - Maternal exposure during pregnancy [Unknown]
